FAERS Safety Report 4431315-9 (Version None)
Quarter: 2004Q3

REPORT INFORMATION
  Report Type: 
  Country: None (occurrence: None)
  Receive Date: 20040824
  Receipt Date: 20040517
  Transmission Date: 20050211
  Serious: Yes (Hospitalization, Other)
  Sender: FDA-Public Use
  Company Number: LB-MERCK-0405USA01161

PATIENT
  Age: 78 Year
  Sex: Female

DRUGS (7)
  1. ASPIRIN [Concomitant]
     Route: 065
  2. LOVENOX [Concomitant]
     Route: 065
  3. LASIX [Concomitant]
     Route: 065
  4. LENITRAL [Concomitant]
     Route: 065
  5. TRITACE [Concomitant]
     Route: 065
  6. ZANTAC [Concomitant]
     Route: 065
  7. ZOCOR [Suspect]
     Route: 048

REACTIONS (2)
  - HYPERTENSION [None]
  - VERTIGO [None]
